FAERS Safety Report 7933370-8 (Version None)
Quarter: 2011Q4

REPORT INFORMATION
  Report Type: 
  Country: None (occurrence: None)
  Receive Date: 20111122
  Receipt Date: 20111122
  Transmission Date: 20120403
  Serious: No
  Sender: FDA-Public Use
  Company Number: None

PATIENT
  Sex: Male
  Weight: 72.574 kg

DRUGS (1)
  1. POLYETHYLENE GLYCOL [Suspect]
     Indication: POLLAKIURIA
     Dosage: 17 GRAMS DISSOLVED IN WATER
     Route: 048
     Dates: start: 20110110, end: 20111121

REACTIONS (2)
  - DIARRHOEA [None]
  - BOWEL MOVEMENT IRREGULARITY [None]
